FAERS Safety Report 10626649 (Version 2)
Quarter: 2014Q4

REPORT INFORMATION
  Report Type: Spontaneous
  Country: GB (occurrence: GB)
  Receive Date: 20141204
  Receipt Date: 20141217
  Transmission Date: 20150529
  Serious: Yes (Congenital Anomaly, Other)
  Sender: FDA-Public Use
  Company Number: GB-TEVA-526470USA

PATIENT

DRUGS (2)
  1. LEVONELLE-2 [Suspect]
     Active Substance: LEVONORGESTREL
     Indication: POST COITAL CONTRACEPTION
     Route: 064
     Dates: start: 200207, end: 200207
  2. MICROGYNON-30 [Suspect]
     Active Substance: ETHINYL ESTRADIOL\LEVONORGESTREL ACETATE
     Indication: CONTRACEPTION
     Route: 064
     Dates: start: 200112, end: 20020713

REACTIONS (5)
  - Limb reduction defect [Unknown]
  - Scoliosis [Unknown]
  - Foetal exposure during pregnancy [Unknown]
  - Congenital musculoskeletal anomaly [Unknown]
  - Abdominal wall anomaly [Unknown]
